FAERS Safety Report 15563799 (Version 1)
Quarter: 2018Q4

REPORT INFORMATION
  Report Type: Spontaneous
  Country: CA (occurrence: CA)
  Receive Date: 20181029
  Receipt Date: 20181029
  Transmission Date: 20190205
  Serious: Yes (Other)
  Sender: FDA-Public Use
  Company Number: CA-BAXTER-2018BAX026277

PATIENT
  Sex: Female

DRUGS (6)
  1. METRONIDAZOLE 5MG/ML INJECTION [Suspect]
     Active Substance: METRONIDAZOLE
     Indication: ENTEROCOLITIS BACTERIAL
     Route: 065
  2. VANCOMYCIN HYDROCHLORIDE 5 MG/ML [Suspect]
     Active Substance: VANCOMYCIN HYDROCHLORIDE
     Indication: CLOSTRIDIUM DIFFICILE COLITIS
  3. GLATIRAMER ACETATE. [Concomitant]
     Active Substance: GLATIRAMER ACETATE
     Indication: RELAPSING-REMITTING MULTIPLE SCLEROSIS
     Route: 065
     Dates: start: 2001
  4. CLINDAMYCIN 600 MG [Suspect]
     Active Substance: CLINDAMYCIN
     Indication: GINGIVITIS
     Route: 065
  5. VANCOMYCIN HYDROCHLORIDE 5 MG/ML [Suspect]
     Active Substance: VANCOMYCIN HYDROCHLORIDE
     Indication: ENTEROCOLITIS BACTERIAL
     Route: 065
  6. METRONIDAZOLE 5MG/ML INJECTION [Suspect]
     Active Substance: METRONIDAZOLE
     Indication: CLOSTRIDIUM DIFFICILE COLITIS

REACTIONS (3)
  - Pathogen resistance [Unknown]
  - Enterocolitis bacterial [Recovering/Resolving]
  - Clostridium difficile infection [Recovering/Resolving]

NARRATIVE: CASE EVENT DATE: 2005
